FAERS Safety Report 5071562-9 (Version None)
Quarter: 2006Q3

REPORT INFORMATION
  Report Type: 
  Country: None (occurrence: None)
  Receive Date: 20060803
  Receipt Date: 20060803
  Transmission Date: 20061208
  Serious: Yes (Hospitalization)
  Sender: FDA-Public Use
  Company Number: None

PATIENT
  Age: 55 Year
  Sex: Male
  Weight: 90.7 kg

DRUGS (1)
  1. THALIDOMIDE 100 MG [Suspect]
     Indication: MULTIPLE MYELOMA
     Dosage: 200 MG PO DAILY
     Route: 048
     Dates: start: 20060511, end: 20060605

REACTIONS (1)
  - DEEP VEIN THROMBOSIS [None]
